FAERS Safety Report 16725093 (Version 2)
Quarter: 2019Q3

REPORT INFORMATION
  Report Type: Spontaneous
  Country: US (occurrence: US)
  Receive Date: 20190821
  Receipt Date: 20190911
  Transmission Date: 20191005
  Serious: No
  Sender: FDA-Public Use
  Company Number: US-PFIZER INC-2019357465

PATIENT
  Age: 73 Year
  Sex: Male
  Weight: 62.13 kg

DRUGS (14)
  1. NOXAFIL [Concomitant]
     Active Substance: POSACONAZOLE
     Dosage: 100 MG, UNK
     Dates: start: 20190712
  2. LETERMOVIR [Concomitant]
     Active Substance: LETERMOVIR
     Dosage: 480 MG, UNK
     Dates: start: 20190527
  3. ATOVAQUONE. [Concomitant]
     Active Substance: ATOVAQUONE
     Dosage: UNK (750 MG/ 5 ML)
  4. ALLOPURINOL. [Concomitant]
     Active Substance: ALLOPURINOL
     Dosage: 100 MG, UNK
  5. LORATADINE. [Concomitant]
     Active Substance: LORATADINE
     Dosage: UNK
  6. POTASSIUM [Concomitant]
     Active Substance: POTASSIUM
     Dosage: 40 MG, UNK
  7. LOPID [Concomitant]
     Active Substance: GEMFIBROZIL
     Dosage: 600 MG, UNK
     Dates: start: 20190806
  8. RAPAMUNE [Suspect]
     Active Substance: SIROLIMUS
     Indication: STEM CELL TRANSPLANT
     Dosage: 0.5 MG, DAILY
  9. ACYCLOVIR [ACICLOVIR] [Concomitant]
     Active Substance: ACYCLOVIR
     Dosage: 800 MG, UNK
     Dates: start: 20190522
  10. BUDESONIDE. [Concomitant]
     Active Substance: BUDESONIDE
     Dosage: 3 MG, UNK
     Dates: start: 20190802
  11. TAMSULOSIN [Concomitant]
     Active Substance: TAMSULOSIN
     Dosage: 0.4 MG, UNK
     Dates: start: 20190813
  12. RAPAMUNE [Suspect]
     Active Substance: SIROLIMUS
     Dosage: UNK, ALTERNATE DAY
     Dates: end: 20190819
  13. METOPROLOL. [Concomitant]
     Active Substance: METOPROLOL
     Dosage: 50 MG, UNK
  14. AMLODIPINE [Concomitant]
     Active Substance: AMLODIPINE BESYLATE
     Dosage: 5 MG, UNK

REACTIONS (4)
  - Laboratory test abnormal [Recovered/Resolved]
  - Off label use [Unknown]
  - Product use in unapproved indication [Unknown]
  - Anaemia [Not Recovered/Not Resolved]
